FAERS Safety Report 14851538 (Version 4)
Quarter: 2018Q2

REPORT INFORMATION
  Report Type: Spontaneous
  Country: GR (occurrence: GR)
  Receive Date: 20180507
  Receipt Date: 20180611
  Transmission Date: 20180711
  Serious: Yes (Other)
  Sender: FDA-Public Use
  Company Number: GR-ALVOGEN-2018-ALVOGEN-096051

PATIENT
  Age: 58 Year
  Sex: Female

DRUGS (9)
  1. ATENOLOL. [Suspect]
     Active Substance: ATENOLOL
     Indication: TACHYCARDIA
     Route: 065
  2. PANADOL EXTRA [Interacting]
     Active Substance: ACETAMINOPHEN\CAFFEINE
     Indication: HEADACHE
     Dosage: UNK
     Route: 065
     Dates: start: 20180314
  3. ZOVIRAX [Interacting]
     Active Substance: ACYCLOVIR
     Indication: HERPES VIRUS INFECTION
     Route: 065
  4. NORGESIC [Interacting]
     Active Substance: ASPIRIN\CAFFEINE\ORPHENADRINE CITRATE
     Indication: MYALGIA
     Dosage: UNK
     Route: 065
     Dates: start: 20180312
  5. BIOFENAC (ACECLOFENAC) [Interacting]
     Active Substance: ACECLOFENAC
     Indication: MYALGIA
     Dosage: UNK
     Route: 065
     Dates: start: 20180312
  6. ZOVIRAX [Interacting]
     Active Substance: ACYCLOVIR
     Indication: HERPES VIRUS INFECTION
     Dosage: 200.0MG UNKNOWN
     Route: 065
     Dates: start: 20180310, end: 20180320
  7. AMOXIL [Interacting]
     Active Substance: AMOXICILLIN
     Indication: TOOTH ABSCESS
     Dosage: UNK (NON AZ DRUG)
     Route: 065
  8. LONARID [Interacting]
     Active Substance: ACETAMINOPHEN\AMOBARBITAL\CAFFEINE\CODEINE PHOSPHATE
     Indication: HEADACHE
     Dates: start: 20180314
  9. AMOXIL [Interacting]
     Active Substance: AMOXICILLIN
     Indication: TOOTH ABSCESS
     Dosage: UNK
     Route: 065
     Dates: start: 20180312, end: 20180318

REACTIONS (5)
  - Vision blurred [Not Recovered/Not Resolved]
  - Drug interaction [Not Recovered/Not Resolved]
  - Vertigo [Recovered/Resolved]
  - Vitreous detachment [Not Recovered/Not Resolved]
  - Hypoaesthesia [Recovered/Resolved]

NARRATIVE: CASE EVENT DATE: 20180314
